FAERS Safety Report 5761159-7 (Version None)
Quarter: 2008Q2

REPORT INFORMATION
  Report Type: 
  Country: None (occurrence: None)
  Receive Date: 20080606
  Receipt Date: 20080529
  Transmission Date: 20081010
  Serious: Yes (Hospitalization, Other)
  Sender: FDA-Public Use
  Company Number: B0510218A

PATIENT
  Age: 36 Year
  Sex: Male
  Weight: 65 kg

DRUGS (6)
  1. KIVEXA [Suspect]
     Indication: HIV INFECTION
     Dosage: 1TAB PER DAY
     Route: 048
     Dates: start: 20080122, end: 20080127
  2. SUSTIVA [Concomitant]
     Indication: HIV INFECTION
     Dosage: 1TAB PER DAY
     Route: 048
     Dates: start: 20080122
  3. PYRIMETHAMINE TAB [Concomitant]
     Indication: TOXOPLASMOSIS
     Dosage: 1TAB PER DAY
     Route: 048
     Dates: start: 20071201
  4. CLINDAMYCIN HCL [Concomitant]
     Indication: TOXOPLASMOSIS
     Dosage: 4TAB PER DAY
     Route: 048
     Dates: start: 20071201
  5. DEPAKENE [Concomitant]
     Indication: CONVULSION
     Dosage: 2TAB PER DAY
     Route: 048
  6. NEURONTIN [Concomitant]
     Indication: PAIN
     Dosage: 3TAB PER DAY
     Route: 048

REACTIONS (4)
  - DRUG HYPERSENSITIVITY [None]
  - PRURITUS [None]
  - PYREXIA [None]
  - RASH MACULO-PAPULAR [None]
